FAERS Safety Report 23443126 (Version 2)
Quarter: 2024Q1

REPORT INFORMATION
  Report Type: Spontaneous
  Country: IN (occurrence: IN)
  Receive Date: 20240125
  Receipt Date: 20240129
  Transmission Date: 20240410
  Serious: Yes (Death, Other)
  Sender: FDA-Public Use
  Company Number: IN-PFIZER INC-2021058625

PATIENT
  Age: 82 Year
  Sex: Female
  Weight: 55.8 kg

DRUGS (4)
  1. PALBOCICLIB [Suspect]
     Active Substance: PALBOCICLIB
     Indication: Breast cancer metastatic
     Dosage: 1-0-0 X 21 DAYS
     Route: 048
     Dates: start: 20200415
  2. LETROZOLE [Concomitant]
     Active Substance: LETROZOLE
     Dosage: 2.5 MG, 1X/DAY
  3. SHELCAL XT [Concomitant]
     Dosage: 1 DF, 1X/DAY
  4. ZOLEDRONIC ACID [Concomitant]
     Active Substance: ZOLEDRONIC ACID
     Dosage: 4 MG/100 ML OF NORMAL SOLUTION
     Route: 042

REACTIONS (3)
  - Death [Fatal]
  - Core decompression [Unknown]
  - Lymphoedema [Unknown]

NARRATIVE: CASE EVENT DATE: 20221031
